FAERS Safety Report 23828314 (Version 1)
Quarter: 2024Q2

REPORT INFORMATION
  Report Type: Spontaneous
  Country: US (occurrence: US)
  Receive Date: 20240508
  Receipt Date: 20240508
  Transmission Date: 20240716
  Serious: Yes (Other)
  Sender: FDA-Public Use
  Company Number: None

PATIENT
  Age: 36 Year
  Sex: Male

DRUGS (8)
  1. MYCOPHENOLATE MOFETIL [Suspect]
     Active Substance: MYCOPHENOLATE MOFETIL
     Indication: Pyoderma gangrenosum
     Dosage: UNK
     Route: 065
  2. ADALIMUMAB [Concomitant]
     Active Substance: ADALIMUMAB\ISOPROPYL ALCOHOL
     Indication: Pyoderma gangrenosum
     Dosage: UNK
     Route: 065
  3. ANAKINRA [Concomitant]
     Active Substance: ANAKINRA
     Indication: Pyoderma gangrenosum
     Dosage: UNK
     Route: 065
  4. CYCLOSPORINE [Concomitant]
     Active Substance: CYCLOSPORINE
     Indication: Pyoderma gangrenosum
     Dosage: UNK
     Route: 065
  5. DAPSONE [Concomitant]
     Active Substance: DAPSONE
     Indication: Pyoderma gangrenosum
     Dosage: UNK
     Route: 065
  6. INFLIXIMAB [Concomitant]
     Active Substance: INFLIXIMAB
     Indication: Pyoderma gangrenosum
     Dosage: UNK
     Route: 026
  7. METHOTREXATE [Concomitant]
     Active Substance: METHOTREXATE
     Indication: Pyoderma gangrenosum
     Dosage: UNK
     Route: 065
  8. TRIAMCINOLONE [Concomitant]
     Active Substance: TRIAMCINOLONE
     Indication: Pyoderma gangrenosum
     Dosage: UNK
     Route: 026

REACTIONS (2)
  - Renal failure [Recovered/Resolved]
  - Off label use [Unknown]
